FAERS Safety Report 7717271-6 (Version None)
Quarter: 2011Q3

REPORT INFORMATION
  Report Type: 
  Country: None (occurrence: None)
  Receive Date: 20110818
  Receipt Date: 20110714
  Transmission Date: 20111222
  Serious: No
  Sender: FDA-Public Use
  Company Number: 1000022166

PATIENT
  Age: 52 Year
  Sex: Male

DRUGS (6)
  1. MELATONIN (MELATONIN) (MELATONIN) [Concomitant]
  2. VIIBRYD [Suspect]
     Indication: FATIGUE
     Dosage: 10 MG (10 MG, 1 IN 1 D), ORAL
     Route: 048
     Dates: start: 20110709, end: 20110709
  3. VIIBRYD [Suspect]
     Indication: HEADACHE
     Dosage: 10 MG (10 MG, 1 IN 1 D), ORAL
     Route: 048
     Dates: start: 20110709, end: 20110709
  4. MAGNESIUM (MAGNESIUM) (MAGNESIUM) [Concomitant]
  5. MULTIVITAMIN NOS (MULTIVITAMIN NOS) (MULTIVITAMIN NOS) [Concomitant]
  6. FISH OIL (FISH OIL) (FISH OIL) [Concomitant]

REACTIONS (3)
  - ABDOMINAL DISCOMFORT [None]
  - DRUG INTERACTION [None]
  - OROPHARYNGEAL DISCOMFORT [None]
